FAERS Safety Report 15066112 (Version 1)
Quarter: 2018Q2

REPORT INFORMATION
  Report Type: Spontaneous
  Country: US (occurrence: US)
  Receive Date: 20180626
  Receipt Date: 20180626
  Transmission Date: 20180711
  Serious: No
  Sender: FDA-Public Use
  Company Number: US-BAYER-2018-116288

PATIENT
  Sex: Female
  Weight: 75 kg

DRUGS (2)
  1. MIRALAX [Suspect]
     Active Substance: POLYETHYLENE GLYCOL 3350
     Indication: GASTROINTESTINAL DISORDER
     Dosage: UNK UNK, HS(3 CAPS)
     Route: 048
  2. ENEMA [PHOSPHORIC ACID SODIUM,SODIUM PHOSPHATE DIBASIC] [Concomitant]
     Dosage: UNK

REACTIONS (6)
  - Product prescribing issue [Unknown]
  - Product use issue [None]
  - Drug ineffective [Unknown]
  - Product physical consistency issue [None]
  - Product use issue [Unknown]
  - Poor quality drug administered [Unknown]
